FAERS Safety Report 24284577 (Version 5)
Quarter: 2025Q2

REPORT INFORMATION
  Report Type: Report from Study
  Country: US (occurrence: US)
  Receive Date: 20240905
  Receipt Date: 20250416
  Transmission Date: 20250717
  Serious: Yes (Other)
  Sender: NOVARTIS
  Company Number: US-002147023-NVSC2024US070902

PATIENT
  Age: 32 Year
  Sex: Female

DRUGS (9)
  1. KESIMPTA [Suspect]
     Active Substance: OFATUMUMAB
     Indication: Multiple sclerosis
     Dosage: UNK, QMO
     Route: 058
     Dates: start: 20240314
  2. RIZATRIPTAN BENZOATE [Concomitant]
     Active Substance: RIZATRIPTAN BENZOATE
     Indication: Product used for unknown indication
     Route: 048
     Dates: start: 20240708
  3. ACETAZOLAMIDE [Concomitant]
     Active Substance: ACETAZOLAMIDE
     Indication: Product used for unknown indication
     Dosage: 250 MG, BID (30 DAYS 5)
     Route: 048
     Dates: start: 20240625
  4. PREGABALIN [Concomitant]
     Active Substance: PREGABALIN
     Indication: Product used for unknown indication
     Dosage: 200 MG, BID (30 DAYS,5)
     Route: 048
     Dates: start: 20240515
  5. DULOXETINE HYDROCHLORIDE [Concomitant]
     Active Substance: DULOXETINE HYDROCHLORIDE
     Indication: Product used for unknown indication
     Route: 048
     Dates: start: 20221219
  6. TERIZIDONE [Concomitant]
     Active Substance: TERIZIDONE
     Indication: Product used for unknown indication
     Route: 048
     Dates: start: 20221014
  7. Solifenacin succinate;Tamsulosin hydrochloride [Concomitant]
     Indication: Product used for unknown indication
     Route: 048
     Dates: start: 20220826
  8. ERGOCALCIFEROL\RETINOL [Concomitant]
     Active Substance: ERGOCALCIFEROL\RETINOL
     Indication: Product used for unknown indication
     Route: 048
     Dates: start: 20220614
  9. PROMETHAZINE HYDROCHLORIDE [Concomitant]
     Active Substance: PROMETHAZINE HYDROCHLORIDE
     Indication: Product used for unknown indication
     Route: 048

REACTIONS (22)
  - Pelvic inflammatory disease [Recovering/Resolving]
  - Erythema [Unknown]
  - Tenderness [Unknown]
  - Inflammation [Unknown]
  - Vulvovaginal pain [Unknown]
  - Lacrimation increased [Unknown]
  - Arthralgia [Unknown]
  - Muscle spasms [Unknown]
  - Fatigue [Unknown]
  - Pollakiuria [Unknown]
  - Night sweats [Unknown]
  - Cognitive disorder [Unknown]
  - Aphasia [Unknown]
  - Rhinorrhoea [Unknown]
  - Grip strength decreased [Unknown]
  - Urinary tract infection [Unknown]
  - Nasopharyngitis [Unknown]
  - Sinus congestion [Unknown]
  - Respiratory tract congestion [Unknown]
  - Hypersensitivity [Unknown]
  - Injection site pain [Recovered/Resolved]
  - Brain fog [Not Recovered/Not Resolved]

NARRATIVE: CASE EVENT DATE: 20240314
